FAERS Safety Report 9185446 (Version 1)
Quarter: 2013Q1

REPORT INFORMATION
  Report Type: Spontaneous
  Country: US (occurrence: US)
  Receive Date: 20130325
  Receipt Date: 20130325
  Transmission Date: 20140127
  Serious: No
  Sender: FDA-Public Use
  Company Number: US-BIOGENIDEC-2013BI025487

PATIENT
  Age: 52 Year
  Sex: Male

DRUGS (1)
  1. TYSABRI [Suspect]
     Indication: PRODUCT USED FOR UNKNOWN INDICATION
     Route: 042
     Dates: start: 201302

REACTIONS (4)
  - Toothache [Recovered/Resolved]
  - Gingival swelling [Recovered/Resolved]
  - Gingival pain [Recovered/Resolved]
  - Gingival erythema [Recovered/Resolved]
